FAERS Safety Report 19438795 (Version 1)
Quarter: 2021Q2

REPORT INFORMATION
  Report Type: Spontaneous
  Country: US (occurrence: US)
  Receive Date: 20210618
  Receipt Date: 20210618
  Transmission Date: 20210717
  Serious: No
  Sender: FDA-Public Use
  Company Number: US-GW PHARMA-202106USGW02916

PATIENT

DRUGS (1)
  1. EPIDIOLEX [Suspect]
     Active Substance: CANNABIDIOL
     Indication: EPILEPSY
     Dosage: 230 MILLIGRAM, BID (DOSE INCREASED TO 260 MG BID FOR 1 WEEK THEN 300 MG BID, NEW RX NOT YET SHIPPED)
     Route: 048
     Dates: start: 202105

REACTIONS (2)
  - Product use in unapproved indication [Unknown]
  - Weight abnormal [Unknown]

NARRATIVE: CASE EVENT DATE: 2021
